FAERS Safety Report 5041700-2 (Version None)
Quarter: 2006Q2

REPORT INFORMATION
  Report Type: 
  Country: None (occurrence: None)
  Receive Date: 20060630
  Receipt Date: 20060616
  Transmission Date: 20061013
  Serious: Yes (Other)
  Sender: FDA-Public Use
  Company Number: 2006P1000344

PATIENT
  Age: 6 Month
  Sex: Male
  Weight: 6.4 kg

DRUGS (1)
  1. BUSULFEX [Suspect]
     Indication: DRUG USE FOR UNKNOWN INDICATION
     Dosage: 8 MG, Q6H; IV
     Route: 042
     Dates: start: 20060614

REACTIONS (1)
  - ACCIDENTAL OVERDOSE [None]
